FAERS Safety Report 8566159-X (Version None)
Quarter: 2012Q3

REPORT INFORMATION
  Report Type: 
  Country: None (occurrence: None)
  Receive Date: 20120803
  Receipt Date: 20110821
  Transmission Date: 20120928
  Serious: No
  Sender: FDA-Public Use
  Company Number: US-ABBOTT-11P-163-0848974-00

PATIENT
  Sex: Female

DRUGS (8)
  1. NIASPAN [Suspect]
     Dates: start: 20110201, end: 20110201
  2. NIASPAN [Suspect]
     Dates: start: 20110201
  3. ASPIRIN [Concomitant]
     Indication: HYPERPARATHYROIDISM
  4. NIASPAN [Suspect]
     Indication: HIGH DENSITY LIPOPROTEIN DECREASED
     Dates: start: 20110201
  5. SYNTHROID [Concomitant]
     Indication: HYPOTHYROIDISM
  6. GONTROPIN INJ [Concomitant]
     Indication: HYPOPARATHYROIDISM
  7. CRESTOR [Concomitant]
     Indication: BLOOD CHOLESTEROL
  8. METFORMIN HYDROCHLORIDE [Concomitant]
     Indication: INSULIN RESISTANCE

REACTIONS (3)
  - ERYTHEMA [None]
  - FLUSHING [None]
  - PARAESTHESIA [None]
